FAERS Safety Report 9433694 (Version 1)
Quarter: 2013Q3

REPORT INFORMATION
  Report Type: Spontaneous
  Country: US (occurrence: US)
  Receive Date: 20130731
  Receipt Date: 20130731
  Transmission Date: 20140515
  Serious: Yes (Other)
  Sender: FDA-Public Use
  Company Number: US-BAYER-2013-092643

PATIENT
  Sex: Male

DRUGS (2)
  1. XARELTO [Suspect]
     Route: 048
  2. ACETYLSALICYLIC ACID({=100 MG) [Suspect]
     Route: 065

REACTIONS (1)
  - Eye haemorrhage [Not Recovered/Not Resolved]
